FAERS Safety Report 24464492 (Version 1)
Quarter: 2024Q4

REPORT INFORMATION
  Report Type: Spontaneous
  Country: US (occurrence: US)
  Receive Date: 20241018
  Receipt Date: 20241018
  Transmission Date: 20250114
  Serious: No
  Sender: ROCHE
  Company Number: US-ROCHE-3498510

PATIENT
  Sex: Male

DRUGS (12)
  1. XOLAIR [Suspect]
     Active Substance: OMALIZUMAB
     Indication: Idiopathic urticaria
     Dosage: STRENGTH-150MG/ML . INJECT 300MG SUBCUTANEOUSLY EVERY 4 WEEKS
     Route: 058
  2. XOLAIR [Suspect]
     Active Substance: OMALIZUMAB
  3. ADVAIR DISKUS [Concomitant]
     Active Substance: FLUTICASONE PROPIONATE\SALMETEROL XINAFOATE
     Dosage: AEP 100-50MC
  4. ALBUTEROL [Concomitant]
     Active Substance: ALBUTEROL
  5. FAMOTIDINE [Concomitant]
     Active Substance: FAMOTIDINE
  6. LORATADINE [Concomitant]
     Active Substance: LORATADINE
  7. LOSARTAN [Concomitant]
     Active Substance: LOSARTAN
  8. LOVASTATIN [Concomitant]
     Active Substance: LOVASTATIN
  9. METFORMIN [Concomitant]
     Active Substance: METFORMIN HYDROCHLORIDE
  10. MONTELUKAST [Concomitant]
     Active Substance: MONTELUKAST
  11. PIOGLITAZONE [Concomitant]
     Active Substance: PIOGLITAZONE
  12. PROAIR DIGIHALER [Concomitant]
     Active Substance: ALBUTEROL SULFATE

REACTIONS (3)
  - Pruritus [Unknown]
  - Urticaria [Unknown]
  - Off label use [Unknown]
